FAERS Safety Report 6370274-9 (Version None)
Quarter: 2009Q3

REPORT INFORMATION
  Report Type: 
  Country: None (occurrence: None)
  Receive Date: 20090923
  Receipt Date: 20090915
  Transmission Date: 20100115
  Serious: Yes (Other)
  Sender: FDA-Public Use
  Company Number: US-JNJFOC-20090803556

PATIENT
  Sex: Male
  Weight: 61.69 kg

DRUGS (1)
  1. REMICADE [Suspect]
     Indication: CROHN'S DISEASE
     Dosage: WEEK 0
     Route: 042
     Dates: start: 20090805

REACTIONS (2)
  - HYPOAESTHESIA [None]
  - PARAESTHESIA [None]
